FAERS Safety Report 15114722 (Version 1)
Quarter: 2018Q3

REPORT INFORMATION
  Report Type: Spontaneous
  Country: JP (occurrence: JP)
  Receive Date: 20180706
  Receipt Date: 20180706
  Transmission Date: 20181010
  Serious: Yes (Hospitalization)
  Sender: FDA-Public Use
  Company Number: JP-GLAXOSMITHKLINE-JP2018JPN107801

PATIENT
  Sex: Male

DRUGS (2)
  1. ARASENA?A [Concomitant]
     Active Substance: VIDARABINE
     Dosage: UNK
     Route: 050
  2. VALTREX [Suspect]
     Active Substance: VALACYCLOVIR HYDROCHLORIDE
     Indication: GENITAL HERPES
     Dosage: UNK
     Route: 048

REACTIONS (2)
  - Abscess [Recovering/Resolving]
  - Pyrexia [Recovering/Resolving]
